FAERS Safety Report 18933508 (Version 1)
Quarter: 2021Q1

REPORT INFORMATION
  Report Type: Spontaneous
  Country: US (occurrence: US)
  Receive Date: 20210224
  Receipt Date: 20210224
  Transmission Date: 20210420
  Serious: No
  Sender: FDA-Public Use
  Company Number: US-TEVA-2021-US-1881096

PATIENT
  Sex: Female

DRUGS (1)
  1. PROGLYCEM [Suspect]
     Active Substance: DIAZOXIDE
     Indication: BLOOD INSULIN INCREASED
     Route: 065

REACTIONS (1)
  - Blood pressure increased [Unknown]
